FAERS Safety Report 6383370-7 (Version None)
Quarter: 2009Q4

REPORT INFORMATION
  Report Type: 
  Country: None (occurrence: None)
  Receive Date: 20091001
  Receipt Date: 20090922
  Transmission Date: 20100525
  Serious: Yes (Other)
  Sender: FDA-Public Use
  Company Number: PHHY2009NO40763

PATIENT
  Sex: Male

DRUGS (3)
  1. TRILEPTAL [Suspect]
     Indication: EPILEPSY
  2. TEMODAL [Interacting]
     Indication: GLIOBLASTOMA MULTIFORME
     Dosage: 75 MG/ M2
     Dates: start: 20090101, end: 20090817
  3. RADIATION THERAPY [Concomitant]
     Indication: GLIOBLASTOMA MULTIFORME

REACTIONS (4)
  - DRUG INTERACTION [None]
  - NEUTROPENIA [None]
  - SKIN HAEMORRHAGE [None]
  - THROMBOCYTOPENIA [None]
